FAERS Safety Report 17282206 (Version 1)
Quarter: 2020Q1

REPORT INFORMATION
  Report Type: Spontaneous
  Country: US (occurrence: US)
  Receive Date: 20191230
  Receipt Date: 20191230
  Transmission Date: 20200409
  Serious: Yes (Hospitalization)
  Sender: FDA-Public Use
  Company Number: None

PATIENT
  Age: 36 Year
  Sex: Female
  Weight: 141.07 kg

DRUGS (1)
  1. STELARA [Suspect]
     Active Substance: USTEKINUMAB
     Dosage: ?          OTHER FREQUENCY:Q3 MONTHS ;?
     Route: 058
     Dates: start: 20191029

REACTIONS (3)
  - Diabetes mellitus [None]
  - Rash [None]
  - Condition aggravated [None]

NARRATIVE: CASE EVENT DATE: 20191129
